FAERS Safety Report 22179707 (Version 1)
Quarter: 2023Q2

REPORT INFORMATION
  Report Type: Spontaneous
  Country: AT (occurrence: AT)
  Receive Date: 20230406
  Receipt Date: 20230406
  Transmission Date: 20230722
  Serious: Yes (Other)
  Sender: FDA-Public Use
  Company Number: AT-BRISTOL-MYERS SQUIBB COMPANY-2023-045375

PATIENT
  Age: 83 Year
  Sex: Male

DRUGS (1)
  1. OPDUALAG [Suspect]
     Active Substance: NIVOLUMAB\RELATLIMAB-RMBW
     Indication: Metastatic malignant melanoma
     Dosage: DOSE : 1;     FREQ : UNAVAILABLE
     Dates: start: 20230306

REACTIONS (5)
  - Pleural effusion [Unknown]
  - Iron deficiency anaemia [Unknown]
  - C-reactive protein increased [Unknown]
  - Cardiac failure [Unknown]
  - Transaminases increased [Recovered/Resolved]
